FAERS Safety Report 20010172 (Version 1)
Quarter: 2021Q4

REPORT INFORMATION
  Report Type: Spontaneous
  Country: CA (occurrence: CA)
  Receive Date: 20211028
  Receipt Date: 20211028
  Transmission Date: 20220303
  Serious: Yes (Hospitalization)
  Sender: FDA-Public Use
  Company Number: CA-SA-2021SA355157

PATIENT
  Age: 37 Year
  Sex: Female
  Weight: 84 kg

DRUGS (27)
  1. LEFLUNOMIDE [Suspect]
     Active Substance: LEFLUNOMIDE
     Dosage: UNK
  2. METHOTREXATE [Suspect]
     Active Substance: METHOTREXATE
     Dosage: UNK
     Dates: start: 201710
  3. INFLECTRA [Concomitant]
     Active Substance: INFLIXIMAB-DYYB
     Indication: Crohn^s disease
     Dosage: 10 MG/KG, Q8W
     Route: 042
     Dates: start: 20170607, end: 20171030
  4. INFLECTRA [Concomitant]
     Active Substance: INFLIXIMAB-DYYB
     Dosage: 10 MG/KG, Q6W
     Route: 042
     Dates: start: 20171211, end: 20201202
  5. INFLECTRA [Concomitant]
     Active Substance: INFLIXIMAB-DYYB
     Dosage: 10 MG/KG, Q6W
     Route: 042
     Dates: start: 20180122, end: 20180122
  6. INFLECTRA [Concomitant]
     Active Substance: INFLIXIMAB-DYYB
     Dosage: 10 MG/KG, Q6W
     Route: 042
     Dates: start: 20180528, end: 20180528
  7. INFLECTRA [Concomitant]
     Active Substance: INFLIXIMAB-DYYB
     Dosage: 10 MG/KG, Q6W
     Route: 042
     Dates: start: 20180820, end: 20180820
  8. INFLECTRA [Concomitant]
     Active Substance: INFLIXIMAB-DYYB
     Dosage: 10 MG/KG, Q6W
     Route: 042
     Dates: start: 20180820, end: 20180820
  9. INFLECTRA [Concomitant]
     Active Substance: INFLIXIMAB-DYYB
     Dosage: 10 MG/KG, Q6W
     Route: 042
     Dates: start: 20180820, end: 20180820
  10. INFLECTRA [Concomitant]
     Active Substance: INFLIXIMAB-DYYB
     Dosage: 10 MG/KG, Q6W
     Route: 042
     Dates: start: 20181001, end: 20181001
  11. INFLECTRA [Concomitant]
     Active Substance: INFLIXIMAB-DYYB
     Dosage: 10 MG/KG, Q6W
     Route: 042
     Dates: start: 20181217, end: 20181217
  12. INFLECTRA [Concomitant]
     Active Substance: INFLIXIMAB-DYYB
     Dosage: 10 MG/KG, Q6W
     Route: 042
     Dates: start: 20190131, end: 20190131
  13. INFLECTRA [Concomitant]
     Active Substance: INFLIXIMAB-DYYB
     Dosage: 10 MG/KG, Q6W
     Route: 042
     Dates: start: 20190314, end: 20190314
  14. INFLECTRA [Concomitant]
     Active Substance: INFLIXIMAB-DYYB
     Dosage: 10 MG/KG, Q6W
     Route: 042
     Dates: start: 20190424, end: 20190424
  15. INFLECTRA [Concomitant]
     Active Substance: INFLIXIMAB-DYYB
     Dosage: 10 MG/KG, Q6W
     Route: 042
     Dates: start: 20190826, end: 20190826
  16. INFLECTRA [Concomitant]
     Active Substance: INFLIXIMAB-DYYB
     Dosage: 10 MG/KG, Q6W
     Route: 042
     Dates: start: 20191007, end: 20191007
  17. INFLECTRA [Concomitant]
     Active Substance: INFLIXIMAB-DYYB
     Dosage: 10 MG/KG, Q6W
     Route: 042
     Dates: start: 20191007, end: 20191007
  18. INFLECTRA [Concomitant]
     Active Substance: INFLIXIMAB-DYYB
     Dosage: 10 MG/KG, Q6W
     Route: 042
     Dates: start: 20200323, end: 20200323
  19. INFLECTRA [Concomitant]
     Active Substance: INFLIXIMAB-DYYB
     Dosage: 10 MG/KG, Q6W
     Route: 042
     Dates: start: 20200504, end: 20200504
  20. INFLECTRA [Concomitant]
     Active Substance: INFLIXIMAB-DYYB
     Dosage: 10 MG/KG, Q4W
     Route: 042
     Dates: start: 20201230, end: 20201230
  21. INFLECTRA [Concomitant]
     Active Substance: INFLIXIMAB-DYYB
     Dosage: 10 MG/KG, Q4W
     Route: 042
     Dates: start: 20210128
  22. DEXILANT [Concomitant]
     Active Substance: DEXLANSOPRAZOLE
  23. PREDNISONE [Concomitant]
     Active Substance: PREDNISONE
  24. ADRIAMYCIN [Concomitant]
     Active Substance: DOXORUBICIN HYDROCHLORIDE
     Dosage: UNK
     Dates: start: 20210128, end: 20210130
  25. BLEOMYCIN [Concomitant]
     Active Substance: BLEOMYCIN SULFATE
     Dosage: UNK
     Dates: start: 20210128, end: 20210130
  26. VINBLASTINE [Concomitant]
     Active Substance: VINBLASTINE
     Dosage: UNK
     Dates: start: 20210128, end: 20210130
  27. DACARBAZINE [Concomitant]
     Active Substance: DACARBAZINE
     Dosage: UNK
     Dates: start: 20210128, end: 20210130

REACTIONS (3)
  - Epigastric discomfort [Unknown]
  - Blood test abnormal [Unknown]
  - Dehydration [Unknown]
